FAERS Safety Report 5342686-3 (Version None)
Quarter: 2007Q2

REPORT INFORMATION
  Report Type: 
  Country: None (occurrence: None)
  Receive Date: 20070601
  Receipt Date: 20070521
  Transmission Date: 20071010
  Serious: Yes (Hospitalization, Other)
  Sender: FDA-Public Use
  Company Number: US-PFIZER INC-2007041326

PATIENT
  Sex: Male

DRUGS (1)
  1. CELEBREX [Suspect]
     Indication: NECK PAIN

REACTIONS (4)
  - ANEURYSM [None]
  - CARDIAC VALVE DISEASE [None]
  - DEPRESSION [None]
  - HYPERTENSION [None]
